FAERS Safety Report 7015732-9 (Version None)
Quarter: 2010Q3

REPORT INFORMATION
  Report Type: 
  Country: None (occurrence: None)
  Receive Date: 20100927
  Receipt Date: 20100429
  Transmission Date: 20110219
  Serious: No
  Sender: FDA-Public Use
  Company Number: US-ASTRAZENECA-2010SE19556

PATIENT
  Age: 49 Year
  Sex: Female

DRUGS (5)
  1. ARIMIDEX [Suspect]
     Indication: BREAST CANCER
     Route: 048
     Dates: start: 20100101, end: 20100101
  2. ARIMIDEX [Suspect]
     Route: 048
     Dates: start: 20100408
  3. SYNTHROID [Concomitant]
     Indication: HYPOTHYROIDISM
  4. ZOMETA [Concomitant]
     Indication: BONE DEVELOPMENT ABNORMAL
  5. COUMADIN [Concomitant]
     Indication: THROMBOSIS

REACTIONS (6)
  - ALOPECIA [None]
  - ARTHRALGIA [None]
  - BACK PAIN [None]
  - HOT FLUSH [None]
  - MENOPAUSE [None]
  - UTERINE HAEMORRHAGE [None]
